FAERS Safety Report 5604759-7 (Version None)
Quarter: 2008Q1

REPORT INFORMATION
  Report Type: 
  Country: None (occurrence: None)
  Receive Date: 20080128
  Receipt Date: 20080122
  Transmission Date: 20080703
  Serious: Yes (Other)
  Sender: FDA-Public Use
  Company Number: PHEH2007US05558

PATIENT
  Age: 69 Year
  Sex: Female

DRUGS (10)
  1. ZELNORM [Suspect]
     Indication: IRRITABLE BOWEL SYNDROME
     Dosage: 6 MG, BID
     Route: 048
     Dates: start: 20040101, end: 20070401
  2. ZELNORM [Suspect]
     Dosage: 2 MG, UNK
  3. ALLEGRA [Concomitant]
     Dosage: 60 MG, UNK
     Route: 048
  4. ASPIRIN [Concomitant]
     Dosage: 81 MG, QD
     Route: 048
  5. HYDROCHLOROTHIAZIDE [Concomitant]
     Dosage: 25 MG, QD
     Route: 048
  6. PREMARIN [Concomitant]
     Dosage: 0.625 MG, QD
     Route: 048
  7. PREVACID [Concomitant]
     Dosage: 30 MG, QD
     Route: 048
  8. PRIMIDONE [Concomitant]
     Dosage: 50 MG, 1/2 TABLET QD
  9. SYNTHROID [Concomitant]
     Dosage: 100 UG, QD
     Route: 048
  10. VERAPAMIL [Concomitant]
     Dosage: 120 MG, QD
     Route: 048

REACTIONS (24)
  - ABDOMINAL PAIN LOWER [None]
  - ABDOMINAL PAIN UPPER [None]
  - ARTHRITIS [None]
  - ASTHENIA [None]
  - CARDIAC DISORDER [None]
  - CHEST PAIN [None]
  - COLD SWEAT [None]
  - CONDITION AGGRAVATED [None]
  - CONSTIPATION [None]
  - DECREASED APPETITE [None]
  - DEFAECATION URGENCY [None]
  - DIARRHOEA [None]
  - DYSPNOEA [None]
  - GASTRIC MUCOSAL HYPERTROPHY [None]
  - GASTRITIS [None]
  - GASTROINTESTINAL DISORDER [None]
  - HAEMATOCHEZIA [None]
  - HEART RATE INCREASED [None]
  - INSOMNIA [None]
  - NAUSEA [None]
  - PRURITUS [None]
  - RECTAL HAEMORRHAGE [None]
  - REGURGITATION [None]
  - VENTRICULAR EXTRASYSTOLES [None]
